FAERS Safety Report 24562944 (Version 1)
Quarter: 2024Q4

REPORT INFORMATION
  Report Type: Other
  Country: TR (occurrence: TR)
  Receive Date: 20241030
  Receipt Date: 20241030
  Transmission Date: 20250115
  Serious: Yes (Hospitalization, Other)
  Sender: ANI
  Company Number: TR-ANIPHARMA-012692

PATIENT
  Sex: Male

DRUGS (12)
  1. RISPERIDONE [Suspect]
     Active Substance: RISPERIDONE
     Indication: Schizophrenia
  2. HALOPERIDOL DECANOATE [Concomitant]
     Active Substance: HALOPERIDOL DECANOATE
     Indication: Schizophrenia
  3. PALIPERIDONE [Concomitant]
     Active Substance: PALIPERIDONE
     Indication: Schizophrenia
  4. OLANZAPINE [Concomitant]
     Active Substance: OLANZAPINE
     Indication: Schizophrenia
  5. FOLIC ACID [Concomitant]
     Active Substance: FOLIC ACID
     Indication: Product used for unknown indication
  6. CLOZAPINE [Concomitant]
     Active Substance: CLOZAPINE
     Indication: Kabuki make-up syndrome
  7. AMISULPRIDE [Concomitant]
     Active Substance: AMISULPRIDE
     Indication: Kabuki make-up syndrome
  8. ARIPIPRAZOLE [Concomitant]
     Active Substance: ARIPIPRAZOLE
     Indication: Kabuki make-up syndrome
     Dosage: LONG ACTING INJECTABLE
  9. CLOZAPINE [Concomitant]
     Active Substance: CLOZAPINE
     Indication: Kabuki make-up syndrome
     Dosage: DOSE INCREASED
  10. RISPERIDONE [Suspect]
     Active Substance: RISPERIDONE
     Indication: Kabuki make-up syndrome
     Dosage: LONG ACTING INJECTABLE
  11. RISPERIDONE [Suspect]
     Active Substance: RISPERIDONE
     Indication: Schizophrenia
     Dosage: INCREASED
  12. CLOZAPINE [Concomitant]
     Active Substance: CLOZAPINE
     Indication: Kabuki make-up syndrome
     Dosage: DOSE INCREASED

REACTIONS (2)
  - Schizophrenia [Unknown]
  - Therapy non-responder [Unknown]
